FAERS Safety Report 4763799-0 (Version None)
Quarter: 2005Q3

REPORT INFORMATION
  Report Type: 
  Country: None (occurrence: None)
  Receive Date: 20050901
  Receipt Date: 20050802
  Transmission Date: 20060218
  Serious: Yes (Congenital Anomaly)
  Sender: FDA-Public Use
  Company Number: 05P-163-0307460-00

PATIENT
  Sex: 0

DRUGS (1)
  1. DEPAKOTE ER [Suspect]

REACTIONS (3)
  - HEART DISEASE CONGENITAL [None]
  - PULMONARY VALVE STENOSIS [None]
  - TRICUSPID VALVE STENOSIS [None]
